FAERS Safety Report 9918835 (Version 2)
Quarter: 2014Q2

REPORT INFORMATION
  Report Type: Spontaneous
  Country: TR (occurrence: TR)
  Receive Date: 20140224
  Receipt Date: 20140620
  Transmission Date: 20141212
  Serious: Yes (Death, Hospitalization, Other)
  Sender: FDA-Public Use
  Company Number: TR-VERTEX PHARMACEUTICALS INC-2014-000875

PATIENT
  Age: 60 Year
  Sex: Female
  Weight: 70 kg

DRUGS (3)
  1. INCIVO [Suspect]
     Indication: CHRONIC HEPATITIS C
     Dosage: 750 MG, TID
     Route: 048
     Dates: start: 20131204, end: 20140207
  2. RIBAVIRIN [Suspect]
     Indication: CHRONIC HEPATITIS C
     Dosage: DOSAGE FORM: TABLET
     Route: 048
     Dates: start: 20131204, end: 20140207
  3. PEGINTERFERON ALFA 2A [Suspect]
     Indication: CHRONIC HEPATITIS C
     Dosage: 180 ?G, QW
     Route: 058
     Dates: start: 20131204, end: 20140207

REACTIONS (13)
  - Sepsis [Fatal]
  - Rash [Fatal]
  - Angioedema [Unknown]
  - Depression [Unknown]
  - Hypoalbuminaemia [Unknown]
  - Soft tissue infection [Unknown]
  - Pyrexia [Unknown]
  - Neutrophilia [Unknown]
  - Leukopenia [Unknown]
  - Drug eruption [Unknown]
  - Urticaria [Unknown]
  - Thrombocytopenia [Unknown]
  - Anaemia [Unknown]
